FAERS Safety Report 8929426 (Version 2)
Quarter: 2013Q1

REPORT INFORMATION
  Report Type: Spontaneous
  Country: US (occurrence: None)
  Receive Date: 20121119
  Receipt Date: 20130226
  Transmission Date: 20140127
  Serious: Yes (Death, Other)
  Sender: FDA-Public Use
  Company Number: TPA2012A08913

PATIENT
  Age: 78 Year
  Sex: Male

DRUGS (9)
  1. ACTOS (PIOGLITAZONE HYDROCHLORIDE) [Suspect]
     Indication: TYPE 2 DIABETES MELLITUS
     Dates: start: 20080131, end: 20101104
  2. DIABETA(GLIBENCLAMIDE) [Concomitant]
  3. METFORMIN(METFORMIN) [Concomitant]
  4. GLYNASE(GLIBENCLAMIDE) [Concomitant]
  5. MICRONASE(GLIBENCLAMIDE) [Concomitant]
  6. NPH(ISOPHANE INSULIN) [Concomitant]
  7. HUMULIN(INSULIN HUMAN ZINC SUSPENSION) [Concomitant]
  8. GLUCOVANCE(METFORMIN HYDROCHLORIDE, GLIBENCLAMIDE) [Concomitant]
  9. GLYBURIDE(GLIBENCLAMIDE) [Concomitant]

REACTIONS (1)
  - Bladder cancer [None]
